FAERS Safety Report 9238848 (Version 1)
Quarter: 2013Q2

REPORT INFORMATION
  Report Type: Spontaneous
  Country: US (occurrence: None)
  Receive Date: 20130417
  Receipt Date: 20130417
  Transmission Date: 20140414
  Serious: No
  Sender: FDA-Public Use
  Company Number: None

PATIENT
  Age: 32 Year
  Sex: Female
  Weight: 65.77 kg

DRUGS (1)
  1. MIRENA [Suspect]
     Indication: CONTRACEPTION
     Route: 067
     Dates: start: 20120701, end: 20130415

REACTIONS (7)
  - Weight increased [None]
  - Fungal infection [None]
  - Bacterial infection [None]
  - Sexual dysfunction [None]
  - Depression [None]
  - Arthralgia [None]
  - Mood swings [None]
